FAERS Safety Report 13427620 (Version 2)
Quarter: 2017Q2

REPORT INFORMATION
  Report Type: Other
  Country: IT (occurrence: IT)
  Receive Date: 20170411
  Receipt Date: 20170421
  Transmission Date: 20170830
  Serious: Yes (Other)
  Sender: FDA-Public Use
  Company Number: IT-VALIDUS PHARMACEUTICALS LLC-IT-2017VAL000518

PATIENT
  Age: 47 Year
  Sex: Female

DRUGS (3)
  1. LISINOPRIL. [Concomitant]
     Active Substance: LISINOPRIL
     Indication: PRODUCT USED FOR UNKNOWN INDICATION
     Dosage: UNK
  2. MODURETIC 5-50 [Concomitant]
     Active Substance: AMILORIDE HYDROCHLORIDE\HYDROCHLOROTHIAZIDE
     Indication: PRODUCT USED FOR UNKNOWN INDICATION
     Dosage: UNK
  3. TRENTAL [Suspect]
     Active Substance: PENTOXIFYLLINE
     Indication: MENIERE^S DISEASE
     Dosage: 600 MG, QD
     Route: 048
     Dates: start: 20170314

REACTIONS (3)
  - Dysentery [Unknown]
  - Vertigo [Unknown]
  - Nausea [Unknown]

NARRATIVE: CASE EVENT DATE: 20170314
